FAERS Safety Report 14194690 (Version 1)
Quarter: 2017Q4

REPORT INFORMATION
  Report Type: Spontaneous
  Country: FR (occurrence: FR)
  Receive Date: 20171116
  Receipt Date: 20171116
  Transmission Date: 20180321
  Serious: Yes (Hospitalization)
  Sender: FDA-Public Use
  Company Number: FR-MERCK KGAA-2034262

PATIENT
  Age: 66 Year
  Sex: Female

DRUGS (2)
  1. LEVOTHYROXINE SODIUM. [Suspect]
     Active Substance: LEVOTHYROXINE SODIUM
     Dates: start: 2000
  2. NOVOTHYROX [Suspect]
     Active Substance: LEVOTHYROXINE SODIUM
     Indication: AUTOIMMUNE THYROIDITIS
     Dates: start: 2017

REACTIONS (9)
  - Fatigue [Recovered/Resolved]
  - Presyncope [Recovered/Resolved]
  - Migraine [Not Recovered/Not Resolved]
  - Hypothyroidism [Recovered/Resolved]
  - Migraine with aura [Not Recovered/Not Resolved]
  - Tachycardia [None]
  - Palpitations [None]
  - Somnolence [Recovered/Resolved]
  - Asthenia [None]

NARRATIVE: CASE EVENT DATE: 201704
